FAERS Safety Report 6870824-X (Version None)
Quarter: 2010Q3

REPORT INFORMATION
  Report Type: 
  Country: None (occurrence: None)
  Receive Date: 20100723
  Receipt Date: 20100712
  Transmission Date: 20110219
  Serious: Yes (Hospitalization)
  Sender: FDA-Public Use
  Company Number: JP-ELI_LILLY_AND_COMPANY-JP201007002441

PATIENT
  Age: 84 Year
  Sex: Male

DRUGS (4)
  1. ZYPREXA FINE GRANULE 1% [Suspect]
     Indication: DELIRIUM
     Dosage: 1.25 MG, DAILY (1/D)
     Route: 048
     Dates: start: 20100701, end: 20100704
  2. ZYPREXA FINE GRANULE 1% [Suspect]
     Dosage: 2.25 MG, DAILY (1/D)
     Route: 048
     Dates: start: 20100705, end: 20100707
  3. ZYPREXA FINE GRANULE 1% [Suspect]
     Dosage: 3.75 MG, DAILY (1/D)
     Route: 048
     Dates: start: 20100708, end: 20100712
  4. LENDORMIN [Concomitant]
     Route: 048

REACTIONS (3)
  - APLASTIC ANAEMIA [None]
  - BONE MARROW FAILURE [None]
  - OFF LABEL USE [None]
